FAERS Safety Report 12780806 (Version 1)
Quarter: 2016Q3

REPORT INFORMATION
  Report Type: Report from Study
  Country: CA (occurrence: CA)
  Receive Date: 20160926
  Receipt Date: 20160926
  Transmission Date: 20161109
  Serious: Yes (Other)
  Sender: FDA-Public Use
  Company Number: CA-JNJFOC-20160919919

PATIENT
  Age: 72 Year
  Sex: Female

DRUGS (1)
  1. SIMPONI [Suspect]
     Active Substance: GOLIMUMAB
     Indication: CROHN^S DISEASE
     Route: 058
     Dates: start: 20121004

REACTIONS (4)
  - Off label use [Unknown]
  - Product use issue [Unknown]
  - Fistula [Unknown]
  - Infected fistula [Unknown]

NARRATIVE: CASE EVENT DATE: 20121004
